FAERS Safety Report 5118690-7 (Version None)
Quarter: 2006Q3

REPORT INFORMATION
  Report Type: 
  Country: None (occurrence: None)
  Receive Date: 20060927
  Receipt Date: 20060912
  Transmission Date: 20061208
  Serious: Yes (Other)
  Sender: FDA-Public Use
  Company Number: GXKR2006ES05663

PATIENT
  Age: 39 Year
  Sex: Female

DRUGS (6)
  1. DEXAMETHASONE [Suspect]
     Dosage: 0.25 MG ONCE/SINGLE, ORAL
     Route: 048
  2. ACTOCORTINA (HYDROCORTISONE SODIUM PHOSPHATE) [Suspect]
     Indication: BRONCHOSPASM
     Dosage: 100 MG, INTRAVENOUS
     Route: 042
  3. URBASON(METHYLPREDNISOLONE SODIUM SUCCINATE) [Suspect]
     Dosage: SEE IMAGE
     Route: 042
  4. POLARAMINE [Concomitant]
  5. VENTOLIN [Concomitant]
  6. VOLUME EXPANDERS [Concomitant]

REACTIONS (1)
  - DRUG HYPERSENSITIVITY [None]
